FAERS Safety Report 19962139 (Version 4)
Quarter: 2022Q1

REPORT INFORMATION
  Report Type: Report from Study
  Country: US (occurrence: US)
  Receive Date: 20211018
  Receipt Date: 20220107
  Transmission Date: 20220423
  Serious: No
  Sender: FDA-Public Use
  Company Number: NVSC2021US235697

PATIENT
  Sex: Female

DRUGS (1)
  1. KESIMPTA [Suspect]
     Active Substance: OFATUMUMAB
     Indication: Multiple sclerosis
     Dosage: 0.4 ML, QW
     Route: 058
     Dates: start: 20211006

REACTIONS (6)
  - Nausea [Unknown]
  - Eye pain [Unknown]
  - Chills [Unknown]
  - Headache [Unknown]
  - Exposure to SARS-CoV-2 [Unknown]
  - COVID-19 [Unknown]
